FAERS Safety Report 10933486 (Version 1)
Quarter: 2015Q1

REPORT INFORMATION
  Report Type: Spontaneous
  Country: FR (occurrence: FR)
  Receive Date: 20150320
  Receipt Date: 20150320
  Transmission Date: 20150721
  Serious: Yes (Hospitalization)
  Sender: FDA-Public Use
  Company Number: FR-ACCORD-029358

PATIENT
  Age: 47 Year
  Sex: Male
  Weight: 96 kg

DRUGS (4)
  1. FLUOROURACIL ACCORD [Suspect]
     Active Substance: FLUOROURACIL
     Indication: SQUAMOUS CELL CARCINOMA
     Dosage: STRENGTH: 50 MG/ML?DAILY DOSE:1565.2174 MG (3000 MG, 1 IN 46 HOURS)
     Route: 042
     Dates: start: 20150209, end: 20150212
  2. DOCETAXEL KABI [Suspect]
     Active Substance: DOCETAXEL
     Indication: SQUAMOUS CELL CARCINOMA
     Dosage: DAILY DOSE: 152 MG, 1 IN A SINGLE INTAKE.
     Route: 042
     Dates: start: 20150212, end: 20150212
  3. PEGFILGRASTIM [Concomitant]
     Active Substance: PEGFILGRASTIM
     Dosage: ONE INJECTION
     Route: 058
     Dates: start: 20150213
  4. CISPLATIN ACCORD [Suspect]
     Active Substance: CISPLATIN
     Indication: SQUAMOUS CELL CARCINOMA
     Dosage: STRENGTH: 1 MG/ML
     Route: 042
     Dates: start: 20150209, end: 20150213

REACTIONS (3)
  - Pruritus [Recovered/Resolved]
  - Rash erythematous [Recovered/Resolved]
  - Oedema [Recovered/Resolved]

NARRATIVE: CASE EVENT DATE: 20150215
